FAERS Safety Report 13167035 (Version 3)
Quarter: 2017Q1

REPORT INFORMATION
  Report Type: Spontaneous
  Country: AT (occurrence: AT)
  Receive Date: 20170131
  Receipt Date: 20170320
  Transmission Date: 20170428
  Serious: Yes (Other)
  Sender: FDA-Public Use
  Company Number: PHHY2017AT012981

PATIENT
  Age: 15 Year
  Weight: 52 kg

DRUGS (2)
  1. RITALIN [Suspect]
     Active Substance: METHYLPHENIDATE HYDROCHLORIDE
     Indication: ATTENTION DEFICIT/HYPERACTIVITY DISORDER
     Dosage: UNK (30 MG)
     Route: 048
     Dates: start: 2012, end: 2014
  2. RITALIN [Suspect]
     Active Substance: METHYLPHENIDATE HYDROCHLORIDE
     Dosage: UNK (40MG)
     Route: 048
     Dates: start: 2014

REACTIONS (7)
  - Vision blurred [Unknown]
  - Visual acuity tests abnormal [Not Recovered/Not Resolved]
  - Visual field defect [Not Recovered/Not Resolved]
  - Macular degeneration [Not Recovered/Not Resolved]
  - Retinal disorder [Not Recovered/Not Resolved]
  - Leukopenia [Recovered/Resolved]
  - Visual impairment [Not Recovered/Not Resolved]

NARRATIVE: CASE EVENT DATE: 20161014
